FAERS Safety Report 15580983 (Version 1)
Quarter: 2018Q4

REPORT INFORMATION
  Report Type: Spontaneous
  Country: US (occurrence: US)
  Receive Date: 20181102
  Receipt Date: 20181102
  Transmission Date: 20190205
  Serious: No
  Sender: FDA-Public Use
  Company Number: US-PFIZER INC-2018437797

PATIENT

DRUGS (1)
  1. FLAGYL [Suspect]
     Active Substance: METRONIDAZOLE\METRONIDAZOLE HYDROCHLORIDE
     Indication: COLITIS
     Dosage: UNK

REACTIONS (4)
  - Abdominal discomfort [Unknown]
  - Hypoaesthesia [Unknown]
  - Product use in unapproved indication [Unknown]
  - Dizziness [Unknown]
